FAERS Safety Report 5842537-4 (Version None)
Quarter: 2008Q3

REPORT INFORMATION
  Report Type: 
  Country: None (occurrence: None)
  Receive Date: 20080812
  Receipt Date: 20080731
  Transmission Date: 20090109
  Serious: Yes (Hospitalization, Other)
  Sender: FDA-Public Use
  Company Number: US-PFIZER INC-2005045559

PATIENT
  Sex: Female
  Weight: 81.6 kg

DRUGS (3)
  1. NEURONTIN [Suspect]
     Indication: DEPRESSION
     Route: 048
  2. NEURONTIN [Suspect]
     Indication: NEURALGIA
  3. NORTRIPTYLINE HCL [Concomitant]
     Route: 048

REACTIONS (4)
  - DEPRESSION [None]
  - DRUG INEFFECTIVE [None]
  - HALLUCINATION [None]
  - PAIN [None]
